FAERS Safety Report 9424431 (Version 1)
Quarter: 2013Q3

REPORT INFORMATION
  Report Type: Spontaneous
  Country: JP (occurrence: JP)
  Receive Date: 20130729
  Receipt Date: 20130729
  Transmission Date: 20140515
  Serious: Yes (Other)
  Sender: FDA-Public Use
  Company Number: JP-ASTELLAS-2013JP007870

PATIENT
  Age: 37 Year
  Sex: Male

DRUGS (4)
  1. PROGRAF [Suspect]
     Indication: COLITIS ULCERATIVE
     Dosage: 2 MG, UNKNOWN/D
     Route: 048
  2. PROGRAF [Suspect]
     Dosage: 8 MG, UNKNOWN/D
     Route: 048
  3. PREDNISOLONE [Concomitant]
     Indication: COLITIS ULCERATIVE
     Dosage: 60 MG, UNKNOWN/D
     Route: 041
  4. 5 ASA [Concomitant]
     Indication: COLITIS ULCERATIVE
     Dosage: 4 G, UNKNOWN/D
     Route: 048

REACTIONS (2)
  - Drug ineffective [Unknown]
  - Colitis ulcerative [Unknown]
